FAERS Safety Report 22347736 (Version 1)
Quarter: 2023Q2

REPORT INFORMATION
  Report Type: Spontaneous
  Country: US (occurrence: US)
  Receive Date: 20230522
  Receipt Date: 20230522
  Transmission Date: 20230721
  Serious: No
  Sender: FDA-Public Use
  Company Number: US-PERRIGO-22US016436

PATIENT
  Age: 74 Year
  Sex: Female
  Weight: 51.25 kg

DRUGS (2)
  1. OMEPRAZOLE [Suspect]
     Active Substance: OMEPRAZOLE
     Indication: Dyspepsia
     Dosage: 20 MG, QD
     Route: 048
     Dates: start: 20221126, end: 20221209
  2. IMURAN [Concomitant]
     Active Substance: AZATHIOPRINE
     Indication: Autoimmune pancreatitis
     Dosage: UNK
     Route: 065
     Dates: start: 202211

REACTIONS (1)
  - Faecal elastase concentration decreased [Unknown]

NARRATIVE: CASE EVENT DATE: 20221210
